FAERS Safety Report 4914301-1 (Version None)
Quarter: 2006Q1

REPORT INFORMATION
  Report Type: 
  Country: None (occurrence: None)
  Receive Date: 20060216
  Receipt Date: 20050818
  Transmission Date: 20060701
  Serious: Yes (Life-Threatening, Hospitalization, Other)
  Sender: FDA-Public Use
  Company Number: PR-ABBOTT-05P-131-0308692-00

PATIENT
  Sex: Male
  Weight: 97.61 kg

DRUGS (18)
  1. TARKA [Suspect]
     Indication: HYPERTENSION
     Route: 048
     Dates: start: 20050210
  2. BUMETANIDE [Concomitant]
     Indication: HYPERTENSION
     Dates: start: 20030101, end: 20050113
  3. POTASSIUM [Concomitant]
     Indication: BLOOD POTASSIUM DECREASED
     Dates: start: 20010101
  4. ALPRAZOLAM [Concomitant]
     Indication: ANXIETY
     Dates: start: 20041101
  5. BENZYLPENICILLIN SODIUM [Concomitant]
     Indication: TOOTH EXTRACTION
     Dates: start: 20050205, end: 20050209
  6. ACETYLSALICYLIC ACID SRT [Concomitant]
     Indication: PROPHYLAXIS
     Dates: start: 19960101
  7. RAMIPRIL [Concomitant]
     Indication: HYPERTENSION
     Dates: start: 20010101, end: 20050113
  8. CRESTOR [Concomitant]
     Indication: DYSLIPIDAEMIA
     Dates: start: 20031201
  9. METFORMIN HYDROCHLORIDE [Concomitant]
     Indication: DIABETES MELLITUS NON-INSULIN-DEPENDENT
     Dates: start: 20010101
  10. INSULIN LISPRO [Concomitant]
     Indication: DIABETES MELLITUS NON-INSULIN-DEPENDENT
     Dosage: 35/25 U/ML
     Dates: start: 19980101, end: 20050701
  11. WARFARIN SODIUM [Concomitant]
     Indication: CORONARY ARTERY DISEASE
     Dates: start: 20030101
  12. DIGOXIN [Concomitant]
     Indication: ATRIAL FIBRILLATION
     Dates: start: 20050701
  13. ISOPHANE INSULIN [Concomitant]
     Indication: DIABETES MELLITUS NON-INSULIN-DEPENDENT
     Dates: start: 20050701
  14. INSULIN [Concomitant]
     Indication: DIABETES MELLITUS
     Dates: start: 20050701
  15. MOMETASONE FUROATE [Concomitant]
     Indication: DERMATITIS
     Dosage: 1 APPLICATION
     Dates: start: 20050328, end: 20050418
  16. ITRACONAZOLE [Concomitant]
     Indication: DERMATITIS
     Dates: start: 20050419, end: 20050423
  17. BUTENAFINE HYDROCHLORIDE [Concomitant]
     Indication: DERMATITIS
     Dosage: 1 APPLICATION
     Dates: start: 20050419, end: 20050515
  18. PANTOPRAZOLE [Concomitant]
     Indication: GASTRITIS
     Dates: start: 20050701

REACTIONS (4)
  - ANAEMIA [None]
  - GASTROINTESTINAL HAEMORRHAGE [None]
  - HYPERGLYCAEMIC HYPEROSMOLAR NONKETOTIC SYNDROME [None]
  - PLEURAL EFFUSION [None]
